FAERS Safety Report 11233815 (Version 2)
Quarter: 2015Q3

REPORT INFORMATION
  Report Type: Spontaneous
  Country: TW (occurrence: TW)
  Receive Date: 20150702
  Receipt Date: 20150810
  Transmission Date: 20151125
  Serious: Yes (Life-Threatening, Hospitalization)
  Sender: FDA-Public Use
  Company Number: PHHY2015TW077384

PATIENT
  Age: 24 Year
  Sex: Male
  Weight: 76 kg

DRUGS (4)
  1. CARBAMAZEPINE. [Suspect]
     Active Substance: CARBAMAZEPINE
     Indication: EPILEPSY
     Route: 065
  2. CARBAMAZEPINE. [Suspect]
     Active Substance: CARBAMAZEPINE
     Route: 065
     Dates: start: 200012
  3. CARBAMAZEPINE. [Suspect]
     Active Substance: CARBAMAZEPINE
     Dosage: 200 MG, QD
     Route: 065
     Dates: start: 20001031, end: 20001101
  4. CARBAMAZEPINE. [Suspect]
     Active Substance: CARBAMAZEPINE
     Dosage: 200 MG, BID
     Route: 065
     Dates: start: 20001102, end: 20001118

REACTIONS (12)
  - Drowning [Recovered/Resolved]
  - Aphasia [Recovered/Resolved]
  - Eosinophil count increased [Recovered/Resolved]
  - Ventricular fibrillation [Recovered/Resolved]
  - Renal impairment [Recovered/Resolved]
  - Asphyxia [Recovered/Resolved]
  - Seizure [Recovered/Resolved]
  - Acute respiratory distress syndrome [Recovered/Resolved]
  - Rash [Recovered/Resolved]
  - Anticonvulsant drug level below therapeutic [Recovered/Resolved]
  - Pneumonia aspiration [Recovered/Resolved]
  - White blood cell count increased [Recovered/Resolved]

NARRATIVE: CASE EVENT DATE: 20001029
